FAERS Safety Report 24875883 (Version 1)
Quarter: 2025Q1

REPORT INFORMATION
  Report Type: Spontaneous
  Country: IT (occurrence: IT)
  Receive Date: 20250122
  Receipt Date: 20250122
  Transmission Date: 20250409
  Serious: Yes (Hospitalization)
  Sender: INDOCO REMEDIES LIMITED
  Company Number: IT-INDOCO-IND-2025-IT-LIT-00034

PATIENT
  Age: 88 Year
  Sex: Female

DRUGS (1)
  1. APIXABAN [Suspect]
     Active Substance: APIXABAN
     Indication: Atrial fibrillation
     Route: 065

REACTIONS (3)
  - Acquired Von Willebrand^s disease [Unknown]
  - Haemarthrosis [Unknown]
  - Overdose [Unknown]
